APPROVED DRUG PRODUCT: DALFAMPRIDINE
Active Ingredient: DALFAMPRIDINE
Strength: 10MG
Dosage Form/Route: TABLET, EXTENDED RELEASE;ORAL
Application: A206765 | Product #001 | TE Code: AB
Applicant: ALKEM LABORATORIES LTD
Approved: Jul 30, 2018 | RLD: No | RS: No | Type: RX